FAERS Safety Report 8518756-5 (Version None)
Quarter: 2012Q3

REPORT INFORMATION
  Report Type: 
  Country: None (occurrence: None)
  Receive Date: 20120718
  Receipt Date: 20120711
  Transmission Date: 20120928
  Serious: Yes (Other)
  Sender: FDA-Public Use
  Company Number: PHHY2010MX43090

PATIENT
  Sex: Female

DRUGS (2)
  1. ZOLEDRONOC ACID [Suspect]
     Indication: OSTEOPOROSIS
     Dosage: 5 MG, YEARLY
     Route: 042
     Dates: start: 20091127
  2. UROFLOX [Concomitant]

REACTIONS (5)
  - UTERINE LEIOMYOMA [None]
  - RENAL PAIN [None]
  - URINARY TRACT INFECTION [None]
  - NEPHROLITHIASIS [None]
  - HAEMORRHAGE URINARY TRACT [None]
